FAERS Safety Report 8949843 (Version 1)
Quarter: 2012Q4

REPORT INFORMATION
  Report Type: 
  Country: US (occurrence: US)
  Receive Date: 20121206
  Receipt Date: 20121206
  Transmission Date: 20130627
  Serious: Yes (Other)
  Sender: FDA-Public Use
  Company Number: PHEH2012US023450

PATIENT
  Sex: Female

DRUGS (6)
  1. DIOVAN HCT [Suspect]
     Indication: HYPERTENSION
     Dosage: 1 DF, (160 mg vals and 12.5 mg hctz)BID
     Dates: start: 2008
  2. METFORMIN [Concomitant]
  3. LOVASTATIN [Concomitant]
  4. CRESTOR [Concomitant]
  5. CALCIUM [Concomitant]
  6. VITAMIN D [Concomitant]

REACTIONS (3)
  - Diabetes mellitus [Unknown]
  - Tooth loss [Unknown]
  - Gingival recession [Unknown]
